FAERS Safety Report 9448359 (Version 1)
Quarter: 2013Q3

REPORT INFORMATION
  Report Type: Spontaneous
  Country: FR (occurrence: FR)
  Receive Date: 20130808
  Receipt Date: 20130808
  Transmission Date: 20140515
  Serious: Yes (Hospitalization)
  Sender: FDA-Public Use
  Company Number: FR-PFIZER INC-2013229259

PATIENT
  Age: 51 Year
  Sex: Male

DRUGS (20)
  1. TRIATEC [Suspect]
     Dosage: 1.25MG, DAILY
     Route: 048
     Dates: start: 20130529, end: 20130530
  2. TRIATEC [Suspect]
     Dosage: 1.25 MG, 2X/DAY
     Route: 048
     Dates: start: 20130531, end: 20130619
  3. ENDOXAN-ASTA [Concomitant]
     Dosage: UNK
     Dates: start: 20130430, end: 20130430
  4. PIPERACILLIN/TAZOBACTAM [Concomitant]
     Dosage: UNK
     Dates: start: 20130523, end: 20130523
  5. VANCOMYCIN [Concomitant]
     Dosage: UNK
     Dates: start: 20130523, end: 20130524
  6. CEFTRIAXONE [Concomitant]
     Dosage: UNK
     Dates: start: 20130528, end: 20130611
  7. OFLOXACIN [Concomitant]
     Dosage: UNK
     Dates: start: 20130528, end: 20130528
  8. CIPROFLOXACIN [Concomitant]
     Dosage: UNK
     Dates: start: 20130523, end: 20130528
  9. SYMBICORT [Concomitant]
     Dosage: UNK
     Dates: end: 20130711
  10. SPIRIVA [Concomitant]
     Dosage: UNK
  11. DELURSAN [Concomitant]
     Dosage: UNK
     Dates: end: 20130711
  12. EUPANTOL [Concomitant]
     Dosage: UNK
  13. KARDEGIC [Concomitant]
     Dosage: UNK
  14. LASILIX [Concomitant]
     Dosage: UNK
     Dates: end: 20130711
  15. UVEDOSE [Concomitant]
     Dosage: UNK
  16. CALCIUM WITH VITAMIN D [Concomitant]
     Dosage: UNK
     Dates: end: 20130711
  17. ARANESP [Concomitant]
     Dosage: UNK
  18. PREDNISONE [Concomitant]
     Dosage: UNK
  19. LANTUS [Concomitant]
     Dosage: UNK
  20. NOVORAPID [Concomitant]
     Dosage: UNK

REACTIONS (2)
  - Agranulocytosis [Recovered/Resolved]
  - Septic shock [Recovered/Resolved]
